FAERS Safety Report 6159048-1 (Version None)
Quarter: 2009Q2

REPORT INFORMATION
  Report Type: 
  Country: None (occurrence: None)
  Receive Date: 20090417
  Receipt Date: 20090407
  Transmission Date: 20091009
  Serious: Yes (Other)
  Sender: FDA-Public Use
  Company Number: BR-PFIZER INC-2009194528

PATIENT

DRUGS (6)
  1. DEPO-PROVERA [Suspect]
     Indication: OFF LABEL USE
     Dosage: 150 MG, EVERY 3 MONTHS
     Dates: start: 20090107
  2. DEPO-PROVERA [Suspect]
     Indication: ENDOMETRIOSIS
  3. DEPO-PROVERA [Suspect]
     Indication: UTERINE LEIOMYOMA
  4. ATENOLOL [Concomitant]
     Indication: HYPERTENSION
     Dosage: UNK
     Dates: start: 19940101
  5. ENALAPRIL [Concomitant]
     Indication: HYPERTENSION
     Dosage: UNK
     Dates: start: 19940101
  6. DIAZEPAM [Concomitant]
     Dosage: UNK

REACTIONS (8)
  - BEDRIDDEN [None]
  - BLINDNESS TRANSIENT [None]
  - DIARRHOEA [None]
  - ERYTHEMA [None]
  - MYALGIA [None]
  - NAUSEA [None]
  - VOMITING [None]
  - WEIGHT DECREASED [None]
